FAERS Safety Report 5006466-0 (Version None)
Quarter: 2006Q2

REPORT INFORMATION
  Report Type: 
  Country: None (occurrence: None)
  Receive Date: 20060519
  Receipt Date: 20060509
  Transmission Date: 20061013
  Serious: Yes (Hospitalization, Other)
  Sender: FDA-Public Use
  Company Number: US-JNJFOC-20050903406

PATIENT
  Sex: Female
  Weight: 51.26 kg

DRUGS (20)
  1. REMICADE [Suspect]
     Route: 042
  2. REMICADE [Suspect]
     Route: 042
  3. REMICADE [Suspect]
     Indication: CROHN'S DISEASE
     Route: 042
  4. METHOTREXATE [Concomitant]
     Route: 048
  5. SOLU-MEDROL [Concomitant]
     Indication: PREMEDICATION
  6. BENADRYL [Concomitant]
  7. AUGMENTIN '125' [Concomitant]
  8. AUGMENTIN '125' [Concomitant]
  9. TYLENOL (CAPLET) [Concomitant]
  10. PROGESTERONE CREAM [Concomitant]
  11. THYROID TAB [Concomitant]
     Route: 048
  12. VITAMIN B-12 [Concomitant]
     Dosage: AS DIRECTED
     Route: 050
  13. NASONEX [Concomitant]
     Route: 045
  14. IRON SUPPLEMENT [Concomitant]
     Route: 048
  15. WELCHOL [Concomitant]
     Route: 048
  16. CENTRUM VITAMIN [Concomitant]
  17. CENTRUM VITAMIN [Concomitant]
  18. AMOXICILLIN [Concomitant]
     Dosage: DOSE 500-125 MG 1 PO Q12 HOURS PRN
     Route: 048
  19. SIMETHICONE [Concomitant]
     Route: 048
  20. ASACOL [Concomitant]
     Route: 048

REACTIONS (11)
  - ABDOMINAL PAIN [None]
  - ANXIETY [None]
  - BONE PAIN [None]
  - CARDIAC FAILURE CONGESTIVE [None]
  - CHOLECYSTECTOMY [None]
  - CONGESTIVE CARDIOMYOPATHY [None]
  - DYSPNOEA [None]
  - INFUSION RELATED REACTION [None]
  - INTESTINAL PERFORATION [None]
  - MYALGIA [None]
  - PERITONITIS [None]
